FAERS Safety Report 4697749-2 (Version None)
Quarter: 2005Q2

REPORT INFORMATION
  Report Type: 
  Country: None (occurrence: None)
  Receive Date: 20050621
  Receipt Date: 20050615
  Transmission Date: 20051028
  Serious: Yes (Other)
  Sender: FDA-Public Use
  Company Number: 200511055BCC

PATIENT
  Sex: Male
  Weight: 90.7194 kg

DRUGS (1)
  1. ASPIRIN [Suspect]
     Dosage: 650 MG, HS, ORAL
     Route: 048
     Dates: end: 20041201

REACTIONS (2)
  - BLINDNESS UNILATERAL [None]
  - RETINAL DETACHMENT [None]
